FAERS Safety Report 10052914 (Version 1)
Quarter: 2014Q1

REPORT INFORMATION
  Report Type: Spontaneous
  Country: IN (occurrence: None)
  Receive Date: 20140331
  Receipt Date: 20140331
  Transmission Date: 20141002
  Serious: Yes (Death)
  Sender: FDA-Public Use
  Company Number: 2014IN00279

PATIENT
  Sex: 0

DRUGS (4)
  1. ZIDOVUDINE [Suspect]
     Indication: HIV INFECTION
  2. LAMIVUDINE [Suspect]
     Indication: HIV INFECTION
  3. NEVIRAPINE [Suspect]
     Indication: HIV INFECTION
  4. EFAVIRENZ (EFAVIRENZ) [Suspect]
     Indication: HIV INFECTION

REACTIONS (1)
  - Anaemia [None]
